FAERS Safety Report 4919966-6 (Version None)
Quarter: 2006Q1

REPORT INFORMATION
  Report Type: 
  Country: None (occurrence: None)
  Receive Date: 20060216
  Receipt Date: 20060207
  Transmission Date: 20060701
  Serious: Yes (Death, Hospitalization)
  Sender: FDA-Public Use
  Company Number: 2005JP002252

PATIENT
  Age: 23 Year
  Sex: Male
  Weight: 49.1 kg

DRUGS (13)
  1. TACROLIMUS (TACROLIMUS) [Suspect]
     Dosage: SEE IMAGE
     Dates: start: 20020204, end: 20020205
  2. TACROLIMUS (TACROLIMUS) [Suspect]
     Dosage: SEE IMAGE
     Dates: start: 20020206, end: 20020206
  3. TACROLIMUS (TACROLIMUS) [Suspect]
     Dosage: SEE IMAGE
     Dates: start: 20020207, end: 20020209
  4. TACROLIMUS (TACROLIMUS) [Suspect]
     Dosage: SEE IMAGE
     Dates: start: 20020210, end: 20020211
  5. TACROLIMUS (TACROLIMUS) [Suspect]
     Dosage: SEE IMAGE
     Dates: start: 20020212, end: 20020215
  6. TACROLIMUS (TACROLIMUS) [Suspect]
     Dosage: SEE IMAGE
     Dates: start: 20020216, end: 20020225
  7. TACROLIMUS (TACROLIMUS) [Suspect]
     Dosage: SEE IMAGE
     Dates: start: 20020302, end: 20020303
  8. TACROLIMUS (TACROLIMUS) [Suspect]
     Dosage: SEE IMAGE
     Dates: start: 20020304, end: 20020312
  9. TACROLIMUS (TACROLIMUS) [Suspect]
     Dosage: SEE IMAGE
     Dates: start: 20020313, end: 20020315
  10. TACROLIMUS (TACROLIMUS) [Suspect]
     Dosage: SEE IMAGE
     Dates: start: 20020320, end: 20020321
  11. TACROLIMUS (TACROLIMUS) [Suspect]
     Dosage: SEE IMAGE
     Dates: start: 20020322, end: 20050701
  12. PREDNISOLONE [Suspect]
     Indication: STEM CELL TRANSPLANT
     Dosage: 10 MG, BID, ORAL
     Route: 048
     Dates: start: 20020701, end: 20040808
  13. SOLU-CORTEF (HYDROCORTISONE SODIUM SUCCINATE) INJECTION [Suspect]
     Indication: STEM CELL TRANSPLANT
     Dosage: 100 MG, BID, IV NOS
     Route: 042
     Dates: start: 20040809, end: 20040909

REACTIONS (9)
  - ATYPICAL MYCOBACTERIAL INFECTION [None]
  - CRYPTOGENIC ORGANIZING PNEUMONIA [None]
  - GENERAL PHYSICAL HEALTH DETERIORATION [None]
  - GRAFT VERSUS HOST DISEASE [None]
  - LEUKAEMIA RECURRENT [None]
  - PNEUMONIA BACTERIAL [None]
  - POST PROCEDURAL COMPLICATION [None]
  - RESPIRATORY FAILURE [None]
  - SUPRAVENTRICULAR TACHYCARDIA [None]
